FAERS Safety Report 21735919 (Version 1)
Quarter: 2022Q4

REPORT INFORMATION
  Report Type: Spontaneous
  Country: TR (occurrence: TR)
  Receive Date: 20221215
  Receipt Date: 20221215
  Transmission Date: 20230113
  Serious: Yes (Other)
  Sender: FDA-Public Use
  Company Number: TR-GE HEALTHCARE-2022CSU009015

PATIENT
  Age: 67 Year
  Sex: Male

DRUGS (4)
  1. OMNIPAQUE [Suspect]
     Active Substance: IOHEXOL
     Indication: Computerised tomogram abdomen
     Dosage: UNK UNK, SINGLE
     Route: 013
  2. OMNIPAQUE [Suspect]
     Active Substance: IOHEXOL
     Indication: Angiocardiogram
  3. OMNIPAQUE [Suspect]
     Active Substance: IOHEXOL
     Indication: Angiogram peripheral
  4. OMNIPAQUE [Suspect]
     Active Substance: IOHEXOL
     Indication: Aortic aneurysm

REACTIONS (2)
  - Encephalopathy [Recovering/Resolving]
  - Anaphylactic shock [Recovering/Resolving]
